FAERS Safety Report 17514508 (Version 1)
Quarter: 2020Q1

REPORT INFORMATION
  Report Type: Spontaneous
  Country: DK (occurrence: DK)
  Receive Date: 20200307
  Receipt Date: 20200307
  Transmission Date: 20200409
  Serious: Yes (Other)
  Sender: FDA-Public Use
  Company Number: DK-AMGEN-DNKSP2020036416

PATIENT
  Age: 34 Year
  Sex: Female

DRUGS (3)
  1. INNOVAIR [Concomitant]
     Active Substance: BECLOMETHASONE DIPROPIONATE\FORMOTEROL
     Indication: ASTHMA
     Dosage: 2 DOSAGE FORM, QD
     Route: 055
     Dates: start: 20180509
  2. AIROMIR [SALBUTAMOL SULFATE] [Concomitant]
     Active Substance: ALBUTEROL SULFATE
     Indication: ASTHMA
     Dosage: 0.1 MILLIGRAM
     Route: 055
     Dates: start: 20131024
  3. AIMOVIG [Suspect]
     Active Substance: ERENUMAB-AOOE
     Indication: MIGRAINE
     Dosage: 140 MILLIGRAM, Q4WK
     Route: 058
     Dates: start: 20190918, end: 20191017

REACTIONS (5)
  - Pruritus [Unknown]
  - Nasal congestion [Unknown]
  - Anaphylactic reaction [Recovered/Resolved]
  - Hypersensitivity [Recovered/Resolved]
  - Asthma [Recovering/Resolving]

NARRATIVE: CASE EVENT DATE: 20191112
